FAERS Safety Report 18521897 (Version 1)
Quarter: 2020Q4

REPORT INFORMATION
  Report Type: Spontaneous
  Country: US (occurrence: US)
  Receive Date: 20201119
  Receipt Date: 20201119
  Transmission Date: 20210114
  Serious: Yes (Death, Other)
  Sender: FDA-Public Use
  Company Number: US-PFIZER INC-2020454996

PATIENT
  Age: 40 Year
  Sex: Female

DRUGS (4)
  1. CYCLOSPORINE. [Suspect]
     Active Substance: CYCLOSPORINE
     Indication: TOXIC EPIDERMAL NECROLYSIS
     Dosage: 100 MG, 2X/DAY
  2. SULFAMETHOXAZOLE+TRIMETHOPRIM [Concomitant]
     Active Substance: SULFAMETHOXAZOLE\TRIMETHOPRIM
     Indication: POSTOPERATIVE WOUND INFECTION
     Dosage: UNK
  3. ETANERCEPT [Suspect]
     Active Substance: ETANERCEPT
     Indication: TOXIC EPIDERMAL NECROLYSIS
     Dosage: 50 MG
     Route: 058
  4. METHYLPREDNISOLONE SODIUM SUCCINATE. [Suspect]
     Active Substance: METHYLPREDNISOLONE SODIUM SUCCINATE
     Indication: TOXIC EPIDERMAL NECROLYSIS
     Dosage: 60 MG, DAILY
     Route: 042

REACTIONS (2)
  - Pulmonary embolism [Fatal]
  - Off label use [Unknown]
